FAERS Safety Report 19169263 (Version 8)
Quarter: 2022Q1

REPORT INFORMATION
  Report Type: Report from Study
  Country: DK (occurrence: DK)
  Receive Date: 20210422
  Receipt Date: 20220314
  Transmission Date: 20220424
  Serious: Yes (Death, Life-Threatening, Hospitalization, Disabling, Other)
  Sender: FDA-Public Use
  Company Number: DK-GLAXOSMITHKLINE-DK2020EME173108

PATIENT
  Age: 5 Year
  Sex: Male
  Weight: 9.7 kg

DRUGS (28)
  1. PIPERACILLIN SODIUM\TAZOBACTAM SODIUM [Suspect]
     Active Substance: PIPERACILLIN SODIUM\TAZOBACTAM SODIUM
     Indication: Vomiting
     Dosage: UNK
     Route: 065
  2. PIPERACILLIN SODIUM\TAZOBACTAM SODIUM [Suspect]
     Active Substance: PIPERACILLIN SODIUM\TAZOBACTAM SODIUM
     Indication: Respiratory arrest
  3. MEROPENEM [Suspect]
     Active Substance: MEROPENEM
     Indication: Antibiotic therapy
     Dosage: UNK
     Route: 065
  4. MEROPENEM [Suspect]
     Active Substance: MEROPENEM
     Indication: Antibiotic therapy
  5. PROPOFOL [Suspect]
     Active Substance: PROPOFOL
     Dosage: UNK
     Route: 065
  6. CIPROFLOXACIN [Suspect]
     Active Substance: CIPROFLOXACIN
     Dosage: UNK
     Route: 065
  7. FENTANYL [Suspect]
     Active Substance: FENTANYL
     Dosage: UNK
  8. PENICILLIN G [Suspect]
     Active Substance: PENICILLIN G
     Dosage: UNK
     Route: 065
  9. M-M-RVAXPRO [Suspect]
     Active Substance: MEASLES VIRUS STRAIN ENDERS^ ATTENUATED EDMONSTON LIVE ANTIGEN\MUMPS VIRUS STRAIN B LEVEL JERYL LYNN
     Indication: Immunisation
     Dosage: UNK
     Route: 065
  10. M-M-RVAXPRO [Suspect]
     Active Substance: MEASLES VIRUS STRAIN ENDERS^ ATTENUATED EDMONSTON LIVE ANTIGEN\MUMPS VIRUS STRAIN B LEVEL JERYL LYNN
     Indication: Pneumococcal sepsis
  11. MUMPS VIRUS VACCINE LIVE NOS [Suspect]
     Active Substance: MUMPS VIRUS STRAIN B LEVEL JERYL LYNN LIVE ANTIGEN
     Indication: Immunisation
     Dosage: UNK
     Route: 065
  12. GENTAMICIN SULFATE [Suspect]
     Active Substance: GENTAMICIN SULFATE
     Indication: Antibiotic therapy
     Dosage: UNK
     Route: 042
  13. GENTAMICIN SULFATE [Suspect]
     Active Substance: GENTAMICIN SULFATE
     Indication: Antibiotic therapy
  14. GENTAMICIN SULFATE [Suspect]
     Active Substance: GENTAMICIN SULFATE
     Indication: Pneumococcal sepsis
  15. GENTAMICIN SULFATE [Suspect]
     Active Substance: GENTAMICIN SULFATE
     Indication: Measles immunisation
  16. GENTAMICIN SULFATE [Suspect]
     Active Substance: GENTAMICIN SULFATE
     Indication: Mumps immunisation
  17. GENTAMICIN SULFATE [Suspect]
     Active Substance: GENTAMICIN SULFATE
     Indication: Rubella immunisation
  18. ALBUTEROL SULFATE [Suspect]
     Active Substance: ALBUTEROL SULFATE
     Dosage: UNK
  19. AMOXICILLIN\CLAVULANATE POTASSIUM [Suspect]
     Active Substance: AMOXICILLIN\CLAVULANATE POTASSIUM
     Indication: Pneumonia
     Dosage: UNK
     Route: 065
     Dates: start: 20150611
  20. AMOXICILLIN\CLAVULANATE POTASSIUM [Suspect]
     Active Substance: AMOXICILLIN\CLAVULANATE POTASSIUM
     Dosage: UNK
     Route: 065
     Dates: start: 20160714, end: 20160720
  21. DEXTROSE\POTASSIUM CHLORIDE\SODIUM CHLORIDE\SODIUM CITRATE [Suspect]
     Active Substance: DEXTROSE\POTASSIUM CHLORIDE\SODIUM CHLORIDE\SODIUM CITRATE
     Indication: Pneumonia
     Dosage: UNK
     Route: 065
  22. PENICILLIN V [Suspect]
     Active Substance: PENICILLIN V
     Indication: Antibiotic therapy
     Dosage: UNK
     Route: 065
  23. PENICILLIN V [Suspect]
     Active Substance: PENICILLIN V
     Indication: Antibiotic therapy
  24. PULMOZYME [Suspect]
     Active Substance: DORNASE ALFA
     Indication: Interstitial lung disease
     Dosage: UNK
     Route: 065
  25. PULMOZYME [Suspect]
     Active Substance: DORNASE ALFA
     Indication: Interstitial lung disease
  26. CEFUROXIME [Suspect]
     Active Substance: CEFUROXIME
     Indication: Antibiotic therapy
     Dosage: UNK
     Route: 042
  27. CEFUROXIME [Suspect]
     Active Substance: CEFUROXIME
     Indication: Antibiotic therapy
  28. RUBELLA VIRUS STRAIN WISTAR RA 27/3 LIVE ANTIGEN [Suspect]
     Active Substance: RUBELLA VIRUS STRAIN WISTAR RA 27/3 LIVE ANTIGEN
     Dosage: UNK

REACTIONS (48)
  - Diarrhoea [Fatal]
  - Malaise [Fatal]
  - Pyrexia [Fatal]
  - Vomiting [Fatal]
  - Pneumonia [Fatal]
  - Cerebral ischaemia [Fatal]
  - Respiratory arrest [Fatal]
  - Pneumonia aspiration [Fatal]
  - Pneumococcal sepsis [Fatal]
  - Muscular weakness [Fatal]
  - Dehydration [Fatal]
  - Atelectasis [Fatal]
  - Ischaemic cerebral infarction [Fatal]
  - Circulatory collapse [Fatal]
  - Intestinal ischaemia [Fatal]
  - Brain injury [Fatal]
  - Interstitial lung disease [Fatal]
  - Respiratory tract infection bacterial [Fatal]
  - Dyspnoea [Fatal]
  - Tachypnoea [Fatal]
  - Injury [Fatal]
  - Metabolic disorder [Fatal]
  - Chest X-ray abnormal [Fatal]
  - Motor dysfunction [Fatal]
  - Lung consolidation [Fatal]
  - Dysphagia [Fatal]
  - Condition aggravated [Fatal]
  - Inflammation [Fatal]
  - Sputum increased [Fatal]
  - Spinal muscular atrophy [Fatal]
  - Disease complication [Fatal]
  - Increased bronchial secretion [Fatal]
  - Lung infiltration [Fatal]
  - Demyelination [Fatal]
  - Endotracheal intubation [Fatal]
  - Scoliosis [Fatal]
  - Bronchial disorder [Fatal]
  - Lymphadenectomy [Fatal]
  - Secretion discharge [Fatal]
  - Ascites [Fatal]
  - Increased bronchial secretion [Fatal]
  - Motor neurone disease [Fatal]
  - Stoma closure [Fatal]
  - Muscle atrophy [Fatal]
  - Pneumonia [Recovered/Resolved]
  - Lower respiratory tract infection bacterial [Fatal]
  - Brain injury [Fatal]
  - Endotracheal intubation [Unknown]

NARRATIVE: CASE EVENT DATE: 20160620
